APPROVED DRUG PRODUCT: AMANTADINE HYDROCHLORIDE
Active Ingredient: AMANTADINE HYDROCHLORIDE
Strength: 50MG/5ML
Dosage Form/Route: SYRUP;ORAL
Application: A077992 | Product #001
Applicant: PH HEALTH LTD
Approved: Dec 12, 2006 | RLD: No | RS: No | Type: DISCN